FAERS Safety Report 9094170 (Version 1)
Quarter: 2013Q1

REPORT INFORMATION
  Report Type: Spontaneous
  Country: US (occurrence: None)
  Receive Date: 20130214
  Receipt Date: 20130214
  Transmission Date: 20140127
  Serious: No
  Sender: FDA-Public Use
  Company Number: None

PATIENT
  Age: 63 Year
  Sex: Female

DRUGS (1)
  1. CIMZIA [Suspect]
     Dosage: FRECUENCY: INJECT 2 SYRINGES (200MG EACH) SUBCUTANEOUSLY AT WEEKS 0,2,+ 4
     Route: 058
     Dates: start: 20130104

REACTIONS (1)
  - Insomnia [None]
